FAERS Safety Report 6898454-4 (Version None)
Quarter: 2010Q3

REPORT INFORMATION
  Report Type: 
  Country: None (occurrence: None)
  Receive Date: 20100802
  Receipt Date: 20071025
  Transmission Date: 20110219
  Serious: No
  Sender: FDA-Public Use
  Company Number: US-PFIZER INC-2007068605

PATIENT
  Sex: Female
  Weight: 72.7 kg

DRUGS (9)
  1. LYRICA [Suspect]
     Indication: NEURALGIA
     Dates: start: 20070726
  2. CYMBALTA [Concomitant]
  3. AMBIEN [Concomitant]
  4. LAMICTAL [Concomitant]
  5. PREVACID [Concomitant]
  6. KLONOPIN [Concomitant]
  7. PROVIGIL [Concomitant]
  8. CYCLOSPORINE [Concomitant]
  9. OXYCODONE [Concomitant]

REACTIONS (1)
  - PAIN [None]
